FAERS Safety Report 5576608-7 (Version None)
Quarter: 2007Q4

REPORT INFORMATION
  Report Type: 
  Country: None (occurrence: None)
  Receive Date: 20071228
  Receipt Date: 20071218
  Transmission Date: 20080405
  Serious: Yes (Other)
  Sender: FDA-Public Use
  Company Number: US-AVENTIS-200718770US

PATIENT
  Age: 48 Year
  Sex: Female

DRUGS (17)
  1. LANTUS [Suspect]
     Route: 051
  2. LANTUS [Suspect]
     Dosage: DOSE: SCALE (TRYING FOR 35-38 U)
     Route: 051
  3. OPTICLIK (INSULIN INJECTION PEN) [Suspect]
  4. ADVAIR DISKUS 100/50 [Concomitant]
     Dosage: DOSE: UNK
  5. ACTOS [Concomitant]
     Dosage: DOSE: UNK
  6. METFORMIN HCL [Concomitant]
     Dosage: DOSE: UNK
  7. GABAPENTIN [Concomitant]
     Dosage: DOSE: UNK
  8. SINGULAIR [Concomitant]
     Dosage: DOSE: UNK
  9. NEXIUM [Concomitant]
     Dosage: DOSE: UNK
  10. AVAPRO [Concomitant]
     Dosage: DOSE: UNK
  11. CRESTOR [Concomitant]
     Dosage: DOSE: UNK
  12. EFFEXOR XR [Concomitant]
     Dosage: DOSE: UNK
  13. DIGOXIN [Concomitant]
     Dosage: DOSE: UNK
  14. NABUMETONE [Concomitant]
     Dosage: DOSE: UNK
  15. COMBIVENT                          /01033501/ [Concomitant]
     Dosage: DOSE: UNK
  16. ALBUTEROL [Concomitant]
     Dosage: DOSE: UNK
  17. TRICOR                             /00090101/ [Concomitant]
     Dosage: DOSE: UNK

REACTIONS (6)
  - ACCIDENTAL OVERDOSE [None]
  - FATIGUE [None]
  - FEELING ABNORMAL [None]
  - HEART RATE INCREASED [None]
  - HYPOGLYCAEMIA [None]
  - TREMOR [None]
